FAERS Safety Report 9227229 (Version 1)
Quarter: 2013Q2

REPORT INFORMATION
  Report Type: Spontaneous
  Country: US (occurrence: US)
  Receive Date: 20130412
  Receipt Date: 20130412
  Transmission Date: 20140414
  Serious: Yes (Hospitalization)
  Sender: FDA-Public Use
  Company Number: US-ELI_LILLY_AND_COMPANY-US201304001680

PATIENT
  Sex: Male

DRUGS (2)
  1. HUMULIN REGULAR [Suspect]
  2. HUMULIN REGULAR [Suspect]

REACTIONS (2)
  - Diabetes mellitus [Unknown]
  - Drug dispensing error [Unknown]
